FAERS Safety Report 9228675 (Version 1)
Quarter: 2013Q2

REPORT INFORMATION
  Report Type: Spontaneous
  Country: US (occurrence: US)
  Receive Date: 20130412
  Receipt Date: 20130412
  Transmission Date: 20140414
  Serious: Yes (Hospitalization)
  Sender: FDA-Public Use
  Company Number: US-SHIRE-ALL1-2013-02249

PATIENT
  Age: 81 Year
  Sex: Female
  Weight: 53.52 kg

DRUGS (4)
  1. LIALDA [Suspect]
     Indication: COLITIS ULCERATIVE
     Dosage: 2.4 G, 1X/DAY:QD (TWO 1.2 G TABLETS DAILY)
     Route: 048
     Dates: start: 201211
  2. FLECAINIDE [Concomitant]
     Indication: ATRIAL FIBRILLATION
     Dosage: 50 MG, 2X/DAY:BID
     Route: 048
     Dates: start: 2012
  3. METOPROLOL [Concomitant]
     Indication: BLOOD PRESSURE
     Dosage: 100 MG, 2X/DAY:BID
     Route: 048
     Dates: start: 2012
  4. XARELTO [Concomitant]
     Indication: ANTICOAGULANT THERAPY
     Dosage: 20 MG, 1X/DAY:QD
     Route: 048
     Dates: start: 2012

REACTIONS (7)
  - Abdominal adhesions [Recovered/Resolved]
  - Small intestinal obstruction [Recovered/Resolved]
  - Abdominal pain [Unknown]
  - Nausea [Not Recovered/Not Resolved]
  - Muscular weakness [Recovering/Resolving]
  - Arthropathy [Recovering/Resolving]
  - Hypertension [Not Recovered/Not Resolved]
